FAERS Safety Report 7927390-7 (Version None)
Quarter: 2011Q4

REPORT INFORMATION
  Report Type: 
  Country: None (occurrence: None)
  Receive Date: 20111118
  Receipt Date: 20111108
  Transmission Date: 20120403
  Serious: Yes (Hospitalization)
  Sender: FDA-Public Use
  Company Number: US-BAYER-201041994NA

PATIENT
  Age: 21 Year
  Sex: Female

DRUGS (8)
  1. TULENOL [Concomitant]
     Indication: HEADACHE
  2. YASMIN [Suspect]
     Indication: CONTRACEPTION
     Dosage: UNK
     Dates: start: 20080101
  3. YASMIN [Suspect]
     Dosage: UNK
     Dates: start: 20100501, end: 20100721
  4. TULENOL [Concomitant]
     Indication: TOOTHACHE
  5. YAZ [Suspect]
     Dates: start: 20100501, end: 20100721
  6. MOTRIN [Concomitant]
     Indication: TOOTHACHE
  7. YAZ [Suspect]
     Indication: CONTRACEPTION
     Dosage: UNK
     Dates: start: 20080101
  8. MOTRIN [Concomitant]
     Indication: HEADACHE

REACTIONS (2)
  - CEREBROVASCULAR ACCIDENT [None]
  - HEMIPLEGIA [None]
